FAERS Safety Report 5225838-2 (Version None)
Quarter: 2007Q1

REPORT INFORMATION
  Report Type: 
  Country: None (occurrence: None)
  Receive Date: 20070130
  Receipt Date: 20070130
  Transmission Date: 20070707
  Serious: Yes (Disabling)
  Sender: FDA-Public Use
  Company Number: None

PATIENT
  Age: 53 Year
  Sex: Female
  Weight: 96.6162 kg

DRUGS (3)
  1. ENBREL [Suspect]
     Indication: RHEUMATOID ARTHRITIS
     Dosage: 50 MG Q WEEK SQ
     Route: 058
  2. SYNTHROID [Concomitant]
  3. ALEVE [Concomitant]

REACTIONS (1)
  - CERVIX CARCINOMA [None]
